FAERS Safety Report 8776952 (Version 2)
Quarter: 2012Q4

REPORT INFORMATION
  Report Type: 
  Country: US (occurrence: US)
  Receive Date: 20120911
  Receipt Date: 20121025
  Transmission Date: 20130627
  Serious: Yes (Other)
  Sender: FDA-Public Use
  Company Number: US-GLAXOSMITHKLINE-A0992002A

PATIENT
  Age: 43 Year
  Sex: Female
  Weight: 54.1 kg

DRUGS (5)
  1. LAMICTAL [Suspect]
     Indication: CONVULSION
     Dosage: 200MG Twice per day
     Route: 048
     Dates: start: 201206
  2. QVAR [Concomitant]
     Indication: ASTHMA
     Dosage: 2PUFF Twice per day
     Route: 055
     Dates: start: 201202
  3. PROAIR HFA [Concomitant]
     Indication: ASTHMA
     Route: 055
     Dates: start: 201202
  4. BC [Concomitant]
  5. BLOOD PRESSURE MEDICATION [Concomitant]

REACTIONS (10)
  - Loss of consciousness [Not Recovered/Not Resolved]
  - Dizziness [Unknown]
  - Migraine [Unknown]
  - Dysphemia [Unknown]
  - Balance disorder [Unknown]
  - Nausea [Unknown]
  - Vomiting [Unknown]
  - Crying [Unknown]
  - Drug dispensing error [Unknown]
  - Hypoglycaemia [Unknown]
